FAERS Safety Report 6085565-9 (Version None)
Quarter: 2009Q1

REPORT INFORMATION
  Report Type: 
  Country: None (occurrence: None)
  Receive Date: 20090220
  Receipt Date: 20090210
  Transmission Date: 20090719
  Serious: Yes (Hospitalization, Other)
  Sender: FDA-Public Use
  Company Number: DE-PFIZER INC-2009155807

PATIENT

DRUGS (6)
  1. AMLODIPINE BESYLATE [Suspect]
     Dosage: 5 MG, 2X/DAY
     Route: 048
  2. HYDROCHLOROTHIAZIDE [Suspect]
     Dosage: 25 MG, 1X/DAY
     Route: 048
  3. BELOC-ZOK MITE [Suspect]
     Dosage: 47.5 MG, 1X/DAY
  4. RAMIPRIL [Suspect]
     Dosage: 5 MG, 2X/DAY
     Route: 048
  5. ACTRAPHANE HM [Concomitant]
     Indication: INSULIN-REQUIRING TYPE 2 DIABETES MELLITUS
     Dosage: UNK
     Route: 058
     Dates: start: 20040101, end: 20081103
  6. ENALAPRIL [Concomitant]
     Indication: HYPERTENSION
     Dosage: 1 DF, UNK
     Route: 048
     Dates: start: 20040101, end: 20081103

REACTIONS (1)
  - COOMBS POSITIVE HAEMOLYTIC ANAEMIA [None]
